FAERS Safety Report 21337102 (Version 2)
Quarter: 2022Q3

REPORT INFORMATION
  Report Type: Spontaneous
  Country: JP (occurrence: JP)
  Receive Date: 20220915
  Receipt Date: 20220921
  Transmission Date: 20221026
  Serious: Yes (Hospitalization)
  Sender: FDA-Public Use
  Company Number: JP-CELLTRION INC.-2022JP014691

PATIENT

DRUGS (7)
  1. TRASTUZUMAB [Suspect]
     Active Substance: TRASTUZUMAB
     Indication: Gastric cancer
     Dosage: 650 MILLIGRAM, QD/1ST COURSE OF SOX + TRASTUZUMAB BS FOR I.V. INFUSION [NK] THERAPY
     Route: 041
     Dates: start: 20220712, end: 20220712
  2. GIMERACIL\OTERACIL\TEGAFUR [Suspect]
     Active Substance: GIMERACIL\OTERACIL\TEGAFUR
     Indication: Chemotherapy
     Dosage: 1ST COURSE OF SOX
     Dates: start: 20220614
  3. GIMERACIL\OTERACIL\TEGAFUR [Suspect]
     Active Substance: GIMERACIL\OTERACIL\TEGAFUR
     Dosage: 1ST COURSE OF SOX + TRASTUZUMAB BS FOR I.V. INFUSION [NK] THERAPY
     Dates: start: 20220712
  4. OXALIPLATIN [Suspect]
     Active Substance: OXALIPLATIN
     Indication: Chemotherapy
     Dosage: 1ST COURSE OF SOX
     Dates: start: 20220614
  5. OXALIPLATIN [Suspect]
     Active Substance: OXALIPLATIN
     Dosage: 1ST COURSE OF SOX + TRASTUZUMAB BS FOR I.V. INFUSION [NK] THERAPY
     Dates: start: 20220712
  6. AZILSARTAN KAMEDOXOMIL [Concomitant]
     Active Substance: AZILSARTAN KAMEDOXOMIL
     Indication: Product used for unknown indication
     Dosage: UNK
  7. BEOVA [Concomitant]
     Indication: Product used for unknown indication
     Dosage: UNK

REACTIONS (2)
  - Infusion related reaction [Recovered/Resolved]
  - Underdose [Unknown]

NARRATIVE: CASE EVENT DATE: 20220712
